FAERS Safety Report 8549729-4 (Version None)
Quarter: 2012Q3

REPORT INFORMATION
  Report Type: 
  Country: None (occurrence: None)
  Receive Date: 20120730
  Receipt Date: 20120718
  Transmission Date: 20120928
  Serious: Yes (Life-Threatening, Other)
  Sender: FDA-Public Use
  Company Number: JP-009507513-2012SP030710

PATIENT

DRUGS (5)
  1. ROCURONIUM BROMIDE [Suspect]
     Indication: NEUROMUSCULAR BLOCKING THERAPY
     Route: 042
     Dates: start: 20111124, end: 20111124
  2. ROCURONIUM BROMIDE [Suspect]
     Dosage: 50 MG, ONCE
     Route: 042
     Dates: start: 20111124, end: 20111124
  3. ULTIVA [Suspect]
     Indication: ANALGESIC THERAPY
     Dosage: PERPETUATION ADMINISTERING DURING 0.5MCG/KG/MINUTE
     Route: 042
     Dates: start: 20111124, end: 20111124
  4. ULTIVA [Suspect]
  5. DIPRIVAN [Suspect]
     Indication: ANAESTHESIA PROCEDURE
     Dosage: 100 MG, ONCE
     Route: 042
     Dates: start: 20111124, end: 20111124

REACTIONS (2)
  - CARDIO-RESPIRATORY ARREST [None]
  - PHARYNGEAL OEDEMA [None]
